FAERS Safety Report 5162417-X (Version None)
Quarter: 2006Q4

REPORT INFORMATION
  Report Type: 
  Country: None (occurrence: None)
  Receive Date: 20061128
  Receipt Date: 20061128
  Transmission Date: 20070319
  Serious: Yes (Other)
  Sender: FDA-Public Use
  Company Number: None

PATIENT
  Age: 65 Year
  Sex: Male
  Weight: 83.9154 kg

DRUGS (10)
  1. PLAVIX [Suspect]
     Indication: CEREBROVASCULAR ACCIDENT PROPHYLAXIS
     Dosage: 75 MG QDAY
     Dates: start: 20060728, end: 20060801
  2. ASPIRIN [Concomitant]
  3. CLOPIDOGREL [Concomitant]
  4. DIPHENHYDRAMINE HCL [Concomitant]
  5. HEPARIN [Concomitant]
  6. LISINOPRIL [Concomitant]
  7. MAGNESIUM OXIDE [Concomitant]
  8. OMEPRAZOLE [Concomitant]
  9. SIMVASTATIN [Concomitant]
  10. SPIRONOLACTONE [Concomitant]

REACTIONS (1)
  - RASH [None]
